FAERS Safety Report 7805527-8 (Version None)
Quarter: 2011Q4

REPORT INFORMATION
  Report Type: 
  Country: None (occurrence: None)
  Receive Date: 20111010
  Receipt Date: 20110930
  Transmission Date: 20120403
  Serious: Yes (Hospitalization, Congenital Anomaly)
  Sender: FDA-Public Use
  Company Number: JP-ASTRAZENECA-2011SE47956

PATIENT
  Age: 0 Day
  Sex: Female
  Weight: 2.8 kg

DRUGS (3)
  1. SEROQUEL [Suspect]
     Indication: MATERNAL EXPOSURE DURING PREGNANCY
     Route: 064
     Dates: start: 20110728, end: 20110803
  2. DEPAS [Suspect]
     Indication: MATERNAL EXPOSURE DURING PREGNANCY
     Route: 064
     Dates: start: 20110728, end: 20110803
  3. ROHYPNOL [Suspect]
     Indication: MATERNAL EXPOSURE DURING PREGNANCY
     Route: 064
     Dates: start: 20110728, end: 20110803

REACTIONS (2)
  - DRUG WITHDRAWAL SYNDROME NEONATAL [None]
  - HYPOTHERMIA [None]
